FAERS Safety Report 19569552 (Version 1)
Quarter: 2021Q3

REPORT INFORMATION
  Report Type: Spontaneous
  Country: US (occurrence: US)
  Receive Date: 20210716
  Receipt Date: 20210716
  Transmission Date: 20211014
  Serious: Yes (Other)
  Sender: FDA-Public Use
  Company Number: US-BAYER-2021-175337

PATIENT
  Sex: Female

DRUGS (1)
  1. MIRENA [Suspect]
     Active Substance: LEVONORGESTREL
     Dosage: 20 ?G PER DAY,CONTINUOUSLY20
     Route: 015
     Dates: start: 20210713

REACTIONS (1)
  - Pelvic infection [Not Recovered/Not Resolved]

NARRATIVE: CASE EVENT DATE: 20210714
